FAERS Safety Report 7759126-7 (Version None)
Quarter: 2011Q3

REPORT INFORMATION
  Report Type: 
  Country: None (occurrence: None)
  Receive Date: 20110919
  Receipt Date: 20110914
  Transmission Date: 20111222
  Serious: Yes (Other)
  Sender: FDA-Public Use
  Company Number: PHEH2011US04149

PATIENT
  Sex: Female

DRUGS (9)
  1. CALCIUM CARBONATE [Concomitant]
  2. SODIUM BICARBONATE [Concomitant]
  3. VITAMIN D [Concomitant]
  4. FOLIC ACID [Concomitant]
  5. EXJADE [Suspect]
     Indication: SICKLE CELL ANAEMIA
     Dosage: 1000 MG, DAILY
     Route: 048
     Dates: start: 20060801
  6. METHADONE HCL [Concomitant]
  7. WARFARIN SODIUM [Concomitant]
  8. BENADRYL [Concomitant]
  9. DILAUDID [Concomitant]

REACTIONS (1)
  - GASTROENTERITIS VIRAL [None]
